FAERS Safety Report 15194785 (Version 1)
Quarter: 2018Q3

REPORT INFORMATION
  Report Type: Spontaneous
  Country: ES (occurrence: ES)
  Receive Date: 20180725
  Receipt Date: 20180725
  Transmission Date: 20181010
  Serious: Yes (Life-Threatening, Hospitalization)
  Sender: FDA-Public Use
  Company Number: ES-AUROBINDO-AUR-APL-2018-037007

PATIENT
  Age: 75 Year
  Sex: Male

DRUGS (9)
  1. METAMIZOL                          /06276701/ [Suspect]
     Active Substance: METAMIZOLE
     Indication: PRODUCT USED FOR UNKNOWN INDICATION
     Dosage: 2 GRAM, 3 TIMES A DAY
     Route: 065
     Dates: start: 20161116, end: 20161119
  2. PANTOPRAZOL                        /01263201/ [Concomitant]
     Active Substance: PANTOPRAZOLE
     Indication: PRODUCT USED FOR UNKNOWN INDICATION
     Dosage: 1 AMP || UNIDAD DE FRECUENCIA: 0 D?A
     Route: 042
     Dates: start: 20161113
  3. LEVOFLOXACIN. [Suspect]
     Active Substance: LEVOFLOXACIN
     Dosage: 500 MILLIGRAM, ONCE A DAY
     Route: 065
     Dates: start: 20161113, end: 20161118
  4. METAMIZOL                          /06276701/ [Suspect]
     Active Substance: METAMIZOLE
     Dosage: 2 GRAM, 3 TIMES A DAY
     Route: 042
     Dates: start: 20161113, end: 20161119
  5. PROPOFOL. [Concomitant]
     Active Substance: PROPOFOL
     Indication: PRODUCT USED FOR UNKNOWN INDICATION
     Dosage: PC || UNIDAD DE FRECUENCIA: 0 D?A
     Route: 042
     Dates: start: 20161113
  6. PIPERACILIN/TAZOBACTAM [Suspect]
     Active Substance: PIPERACILLIN SODIUM\TAZOBACTAM SODIUM
     Indication: PRODUCT USED FOR UNKNOWN INDICATION
     Dosage: 4 GRAM, 6 HOURS (4 GR CADA 6 HORAS)
     Route: 065
     Dates: start: 20161113, end: 20161118
  7. FUROSEMID                          /00032601/ [Concomitant]
     Active Substance: FUROSEMIDE
     Indication: PRODUCT USED FOR UNKNOWN INDICATION
     Dosage: SEGUN TENSIONES || UNIDAD DE FRECUENCIA: 0 D?A
     Route: 042
     Dates: start: 20161113
  8. LEVOFLOXACIN. [Suspect]
     Active Substance: LEVOFLOXACIN
     Indication: PRODUCT USED FOR UNKNOWN INDICATION
     Dosage: 750 MILLIGRAM, ONCE A DAY (750 MG CADA 24 HORAS)
     Route: 065
     Dates: start: 20161113
  9. FENTANIL [Concomitant]
     Active Substance: FENTANYL
     Indication: PRODUCT USED FOR UNKNOWN INDICATION
     Dosage: UNK
     Route: 042
     Dates: start: 20161113

REACTIONS (1)
  - Acute generalised exanthematous pustulosis [Recovered/Resolved]

NARRATIVE: CASE EVENT DATE: 20161117
